FAERS Safety Report 25529570 (Version 1)
Quarter: 2025Q3

REPORT INFORMATION
  Report Type: Spontaneous
  Country: US (occurrence: None)
  Receive Date: 20250708
  Receipt Date: 20250708
  Transmission Date: 20251021
  Serious: Yes (Death)
  Sender: FDA-CTU
  Company Number: None

PATIENT
  Age: 73 Year
  Sex: Male

DRUGS (17)
  1. LENVIMA [Suspect]
     Active Substance: LENVATINIB
     Dates: start: 20250624, end: 20250701
  2. TECENTRIQ [Concomitant]
     Active Substance: ATEZOLIZUMAB
  3. CARVEDILOL [Concomitant]
     Active Substance: CARVEDILOL
  4. FINASTERIDE [Concomitant]
     Active Substance: FINASTERIDE
  5. FUROSEMIDE [Concomitant]
     Active Substance: FUROSEMIDE
  6. GLIPIZIDE [Concomitant]
     Active Substance: GLIPIZIDE
  7. LANTUS [Concomitant]
     Active Substance: INSULIN GLARGINE
  8. NIFEDIPINE [Concomitant]
     Active Substance: NIFEDIPINE
  9. BISACODYL [Concomitant]
     Active Substance: BISACODYL
  10. ASPIRIN [Concomitant]
     Active Substance: ASPIRIN
  11. ACETAMINOPHEN [Concomitant]
     Active Substance: ACETAMINOPHEN
  12. MAGNESIUM [Concomitant]
     Active Substance: MAGNESIUM
  13. OXYCODONE [Concomitant]
     Active Substance: OXYCODONE
  14. PANTOPRAZOLE [Concomitant]
     Active Substance: PANTOPRAZOLE
  15. SENNA [Concomitant]
     Active Substance: SENNOSIDES
  16. SPIRONOLACTONE [Concomitant]
     Active Substance: SPIRONOLACTONE
  17. ASCORBIC ACID\IRON [Concomitant]
     Active Substance: ASCORBIC ACID\IRON

REACTIONS (1)
  - Malignant neoplasm progression [None]

NARRATIVE: CASE EVENT DATE: 20250701
